FAERS Safety Report 4612352-8 (Version None)
Quarter: 2005Q1

REPORT INFORMATION
  Report Type: 
  Country: None (occurrence: None)
  Receive Date: 20050316
  Receipt Date: 20050301
  Transmission Date: 20050727
  Serious: Yes (Hospitalization)
  Sender: FDA-Public Use
  Company Number: US014763

PATIENT
  Age: 52 Year
  Sex: Female
  Weight: 68.0396 kg

DRUGS (5)
  1. GABITRIL [Suspect]
     Indication: ANXIETY
     Dosage: 6 MG QD ORAL
     Route: 048
     Dates: start: 20040202, end: 20040212
  2. GABITRIL [Suspect]
     Indication: ANXIETY
     Dosage: 12 MG QPM ORAL
     Route: 048
     Dates: start: 20040101, end: 20041122
  3. SEROQUEL [Concomitant]
  4. KLONOPIN [Concomitant]
  5. LAMICTAL [Concomitant]

REACTIONS (5)
  - ACTIVITIES OF DAILY LIVING IMPAIRED [None]
  - AGGRESSION [None]
  - APHASIA [None]
  - LOSS OF CONSCIOUSNESS [None]
  - PSYCHOMOTOR SEIZURES [None]
